FAERS Safety Report 15968306 (Version 1)
Quarter: 2019Q1

REPORT INFORMATION
  Report Type: Spontaneous
  Country: US (occurrence: US)
  Receive Date: 20190215
  Receipt Date: 20190215
  Transmission Date: 20190418
  Serious: No
  Sender: FDA-Public Use
  Company Number: US-SA-2019SA044180

PATIENT
  Age: 69 Year
  Sex: Female

DRUGS (8)
  1. AMOXICILLIN. [Concomitant]
     Active Substance: AMOXICILLIN
  2. IRBESARTAN. [Concomitant]
     Active Substance: IRBESARTAN
  3. PRALUENT [Suspect]
     Active Substance: ALIROCUMAB
     Indication: ISCHAEMIC CARDIOMYOPATHY
     Dosage: 75 MG, QOW
     Route: 058
     Dates: start: 20160725
  4. DIAZEPAM. [Concomitant]
     Active Substance: DIAZEPAM
  5. NITROSTAT [Concomitant]
     Active Substance: NITROGLYCERIN
  6. CLOPIDOGREL [Concomitant]
     Active Substance: CLOPIDOGREL BISULFATE
  7. AMLODIPINE [Concomitant]
     Active Substance: AMLODIPINE BESYLATE
  8. CARVEDILOL. [Concomitant]
     Active Substance: CARVEDILOL

REACTIONS (1)
  - Gastrointestinal disorder [Not Recovered/Not Resolved]
